FAERS Safety Report 6490618-7 (Version None)
Quarter: 2009Q4

REPORT INFORMATION
  Report Type: 
  Country: None (occurrence: None)
  Receive Date: 20091208
  Receipt Date: 20091123
  Transmission Date: 20100525
  Serious: Yes (Hospitalization, Other)
  Sender: FDA-Public Use
  Company Number: JPI-P-005997

PATIENT
  Age: 48 Year
  Sex: Female
  Weight: 58.514 kg

DRUGS (11)
  1. XYREM [Suspect]
     Indication: NARCOLEPSY
     Dosage: SEE IMAGE
     Route: 048
     Dates: start: 20090201, end: 20090101
  2. XYREM [Suspect]
     Indication: NARCOLEPSY
     Dosage: SEE IMAGE
     Route: 048
     Dates: end: 20090201
  3. XYREM [Suspect]
     Indication: NARCOLEPSY
     Dosage: SEE IMAGE
     Route: 048
     Dates: start: 20060101
  4. XYREM [Suspect]
     Indication: NARCOLEPSY
     Dosage: SEE IMAGE
     Route: 048
     Dates: start: 20071224
  5. XYREM [Suspect]
     Indication: NARCOLEPSY
     Dosage: SEE IMAGE
     Route: 048
     Dates: start: 20080111
  6. XYREM [Suspect]
     Indication: NARCOLEPSY
     Dosage: SEE IMAGE
     Route: 048
     Dates: start: 20081113
  7. XYREM [Suspect]
     Indication: NARCOLEPSY
     Dosage: SEE IMAGE
     Route: 048
     Dates: start: 20091120
  8. VITAMINS [Concomitant]
  9. CALCIUM [Concomitant]
  10. VITAMIN B-12 [Concomitant]
  11. TRAZODONE HCL [Concomitant]

REACTIONS (8)
  - BLOOD IRON DECREASED [None]
  - COLD SWEAT [None]
  - HAEMORRHAGE [None]
  - INCISION SITE INFECTION [None]
  - NEOPLASM PROGRESSION [None]
  - RENAL NEOPLASM [None]
  - SLEEP DISORDER [None]
  - WOUND DEHISCENCE [None]
